FAERS Safety Report 23808312 (Version 1)
Quarter: 2024Q2

REPORT INFORMATION
  Report Type: Spontaneous
  Country: US (occurrence: None)
  Receive Date: 20240501
  Receipt Date: 20240501
  Transmission Date: 20240716
  Serious: Yes (Hospitalization)
  Sender: FDA-Public Use
  Company Number: None

PATIENT
  Age: 74 Year
  Sex: Female
  Weight: 71 kg

DRUGS (1)
  1. ROSUVASTATIN CALCIUM [Suspect]
     Active Substance: ROSUVASTATIN CALCIUM
     Indication: Hyperlipidaemia
     Dosage: FREQUENCY : DAILY;?TAKE ONE-HALF TABLET BY MOUTH EVERY DAY FOR CHOLESTEROL
     Route: 048
     Dates: start: 20221104, end: 20230120

REACTIONS (4)
  - Constipation [None]
  - Dyspnoea [None]
  - Myalgia [None]
  - Myalgia [None]

NARRATIVE: CASE EVENT DATE: 20230120
